FAERS Safety Report 8695903 (Version 3)
Quarter: 2012Q4

REPORT INFORMATION
  Report Type: 
  Country: US (occurrence: US)
  Receive Date: 20120801
  Receipt Date: 20121220
  Transmission Date: 20130627
  Serious: Yes (Other)
  Sender: FDA-Public Use
  Company Number: US-AMGEN-USASP2012047245

PATIENT
  Sex: Male

DRUGS (1)
  1. XGEVA [Suspect]
     Indication: PROPHYLAXIS
     Dosage: UNK
     Dates: start: 20111114, end: 20120413

REACTIONS (1)
  - Osteonecrosis of jaw [Not Recovered/Not Resolved]
